FAERS Safety Report 19678454 (Version 1)
Quarter: 2021Q3

REPORT INFORMATION
  Report Type: Spontaneous
  Country: NL (occurrence: NL)
  Receive Date: 20210810
  Receipt Date: 20210810
  Transmission Date: 20211014
  Serious: Yes (Hospitalization, Disabling)
  Sender: FDA-Public Use
  Company Number: NL-TEVA-2021-NL-1939729

PATIENT
  Age: 58 Year
  Sex: Male
  Weight: 83 kg

DRUGS (3)
  1. CLOPIDOGREL TABLET   75MG / BRAND NAME NOT SPECIFIED [Suspect]
     Active Substance: CLOPIDOGREL BISULFATE
     Indication: ANTICOAGULANT THERAPY
     Dosage: 75 MILLIGRAM DAILY;  THERAPY END DATE :ASKU
     Dates: start: 2021
  2. MAGNESIUMCITRAAT / BRAND NAME NOT SPECIFIED [Concomitant]
     Dosage: 400 MILLIGRAM DAILY;   THERAPY START DATE: ASKU,THERAPY END DATE:ASKU
  3. VISOLIE [Concomitant]
     Dosage: 2000 MILLIGRAM DAILY;  THERAPY START DATE: ASKU,THERAPY END DATE:ASKU

REACTIONS (2)
  - Dyspnoea [Recovered/Resolved]
  - Pulmonary oedema [Recovered/Resolved]

NARRATIVE: CASE EVENT DATE: 20210602
